FAERS Safety Report 5579215-5 (Version None)
Quarter: 2008Q1

REPORT INFORMATION
  Report Type: 
  Country: None (occurrence: None)
  Receive Date: 20080102
  Receipt Date: 20071226
  Transmission Date: 20080703
  Serious: Yes (Hospitalization)
  Sender: FDA-Public Use
  Company Number: B0501314A

PATIENT
  Age: 77 Year
  Sex: Male

DRUGS (10)
  1. CIBLOR [Suspect]
     Indication: BRONCHIAL DISORDER
     Route: 048
     Dates: start: 20070502, end: 20070503
  2. BISOPROLOL [Suspect]
     Dosage: 5MG PER DAY
     Route: 048
     Dates: end: 20070505
  3. CORTANCYL [Concomitant]
     Indication: BRONCHIAL DISORDER
     Dosage: 30MG THREE TIMES PER DAY
     Dates: start: 20070502, end: 20070503
  4. POLERY [Concomitant]
     Indication: BRONCHIAL DISORDER
     Dates: start: 20070502, end: 20070503
  5. BETNEVAL [Concomitant]
     Dates: start: 20070502, end: 20070503
  6. LERCAN [Concomitant]
  7. PRAVASTATIN [Concomitant]
  8. AMIODARONE HCL [Concomitant]
  9. PLAVIX [Concomitant]
  10. DERINOX [Concomitant]
     Indication: BRONCHIAL DISORDER
     Route: 045
     Dates: start: 20070502, end: 20070503

REACTIONS (12)
  - BLOOD PRESSURE [None]
  - CUTANEOUS VASCULITIS [None]
  - ENTROPION [None]
  - GENERAL PHYSICAL HEALTH DETERIORATION [None]
  - LUNG DISORDER [None]
  - MOUTH ULCERATION [None]
  - PURPURA [None]
  - PYREXIA [None]
  - RASH GENERALISED [None]
  - RASH MACULAR [None]
  - RASH MACULO-PAPULAR [None]
  - RASH PUSTULAR [None]
